FAERS Safety Report 6544743-2 (Version None)
Quarter: 2010Q1

REPORT INFORMATION
  Report Type: 
  Country: None (occurrence: None)
  Receive Date: 20100121
  Receipt Date: 20100114
  Transmission Date: 20100710
  Serious: Yes (Disabling)
  Sender: FDA-Public Use
  Company Number: CA-BRISTOL-MYERS SQUIBB COMPANY-14934640

PATIENT
  Age: 71 Year
  Sex: Male
  Weight: 64 kg

DRUGS (3)
  1. BLINDED: BRIVANIB ALANINATE [Suspect]
     Indication: COLORECTAL CANCER METASTATIC
     Dosage: INTERRUPTED ON 12 JAN10
     Route: 048
     Dates: start: 20091007
  2. ERBITUX [Suspect]
     Indication: COLORECTAL CANCER METASTATIC
     Dosage: INTERRUPTED ON 07 JAN10
     Route: 042
     Dates: start: 20091007
  3. BLINDED: PLACEBO [Suspect]
     Indication: COLORECTAL CANCER METASTATIC
     Dosage: IV WITH ERBITUX,ORAL WITH BRIVANIB. INTERRUPTED WITH ERBITUX ON 07JAN10,WITH BRIVANIB ON 12JAN10
     Route: 048
     Dates: start: 20091007

REACTIONS (3)
  - DIZZINESS [None]
  - DYSPNOEA [None]
  - FATIGUE [None]
